FAERS Safety Report 6652971-0 (Version None)
Quarter: 2010Q1

REPORT INFORMATION
  Report Type: 
  Country: None (occurrence: None)
  Receive Date: 20100326
  Receipt Date: 20100315
  Transmission Date: 20100710
  Serious: Yes (Hospitalization, Other)
  Sender: FDA-Public Use
  Company Number: PHEH2006US09222

PATIENT
  Sex: Male

DRUGS (45)
  1. ZOMETA [Suspect]
     Indication: METASTASES TO BONE
     Dosage: ONCE PER MONTH
     Dates: start: 20030516, end: 20051101
  2. ZOCOR [Concomitant]
  3. AVAPRO [Concomitant]
  4. ASPIRIN [Concomitant]
     Dosage: 81 MG, UNK
  5. DETROL [Concomitant]
     Dosage: 4 MG, UNK
  6. TRILISATE [Concomitant]
  7. DEXAMETHASONE [Concomitant]
     Dosage: UNK, BID
  8. ZOLOFT [Concomitant]
     Dosage: 150 MG, UNK
  9. LOSARTAN POTASSIUM [Concomitant]
     Dosage: 25 MG, UNK
  10. MULTI-VITAMINS [Concomitant]
  11. CALCIUM [Concomitant]
  12. LOVAZA [Concomitant]
  13. CASODEX [Concomitant]
  14. PERCOCET [Concomitant]
  15. RESTORIL [Concomitant]
  16. OXYCODONE [Concomitant]
     Dosage: 10 MG, UNK
  17. CHEMOTHERAPEUTICS NOS [Concomitant]
  18. NAPROXEN [Concomitant]
     Indication: ARTHRITIS
     Dosage: 250 MG, UNK
  19. ZOLADEX [Concomitant]
  20. GOSERELIN ACETATE [Concomitant]
     Dosage: 10.8 MG
     Route: 058
  21. NYSTATIN [Concomitant]
     Dosage: UNK
  22. OXYBUTYNIN CHLORIDE [Concomitant]
     Dosage: 5 MG
  23. LACTULOSE [Concomitant]
     Dosage: 10 GM/15 ML
  24. TEMAZEPAM [Concomitant]
     Dosage: 30 MG
  25. SERTRALINE HYDROCHLORIDE [Concomitant]
     Dosage: 100 MG
  26. BICALUTAMIDE [Concomitant]
     Dosage: 50 MG
  27. SIMVASTATIN [Concomitant]
     Dosage: 80 MG
  28. DOCUSATE CALCIUM [Concomitant]
     Dosage: 240 MG
  29. CLOPIDOGREL BISULFATE [Concomitant]
     Dosage: 75 MG
  30. NITROGLYCERIN [Concomitant]
     Dosage: 0.4 MG
  31. AMOXICILLIN [Concomitant]
     Dosage: 250 MG
  32. SENNA [Concomitant]
     Dosage: 8.6 MG
  33. OMEPRAZOLE [Concomitant]
     Dosage: 20 MG
  34. FAMCICLOVIR [Concomitant]
     Dosage: 500 MG
  35. CHLORHEXIDINE GLUCONATE [Concomitant]
     Dosage: UNK
  36. PENICILLIN VK [Concomitant]
     Dosage: 250 MG
  37. IRBESARTAN [Concomitant]
     Dosage: 300 MG
  38. TERAZOSIN HYDROCHLORIDE [Concomitant]
     Dosage: 2.MG
  39. TAXOTERE [Concomitant]
  40. PROCRIT                            /00909301/ [Concomitant]
  41. FENTANYL [Concomitant]
  42. OXYCONTIN [Concomitant]
  43. TYLENOL W/ CODEINE NO. 3 [Concomitant]
  44. PLAVIX [Concomitant]
  45. SENOKOT                                 /UNK/ [Concomitant]

REACTIONS (25)
  - ANXIETY [None]
  - ARRHYTHMIA [None]
  - BONE DEBRIDEMENT [None]
  - BONE DENSITY DECREASED [None]
  - BONE DISORDER [None]
  - BONE PAIN [None]
  - CORONARY ARTERIAL STENT INSERTION [None]
  - FALL [None]
  - INFECTION [None]
  - INJURY [None]
  - INTERVERTEBRAL DISC PROTRUSION [None]
  - LACUNAR INFARCTION [None]
  - MALIGNANT NEOPLASM PROGRESSION [None]
  - MASTICATION DISORDER [None]
  - ORAL DISORDER [None]
  - ORAL PAIN [None]
  - OSTEONECROSIS [None]
  - PAIN [None]
  - RENAL CYST [None]
  - STOMATITIS [None]
  - SUBDURAL HAEMATOMA [None]
  - SWELLING [None]
  - SYNCOPE [None]
  - TOOTH LOSS [None]
  - TOOTH REPAIR [None]
